FAERS Safety Report 4917079-0 (Version None)
Quarter: 2006Q1

REPORT INFORMATION
  Report Type: 
  Country: None (occurrence: None)
  Receive Date: 20060216
  Receipt Date: 20060216
  Transmission Date: 20060701
  Serious: Yes (Other)
  Sender: FDA-Public Use
  Company Number: None

PATIENT
  Age: 46 Year
  Sex: Male
  Weight: 83.9 kg

DRUGS (12)
  1. FELODIPINE [Suspect]
  2. ALOH/MGOH/SIMTH XTRA STRENGTH LIQ SUSP [Concomitant]
  3. PROCHLORPERAZINE [Concomitant]
  4. CLONIDINE [Concomitant]
  5. FAMOTIDINE [Concomitant]
  6. LISINOPRIL [Concomitant]
  7. PROMETHAZINE [Concomitant]
  8. THIAMINE [Concomitant]
  9. FOLIC ACID [Concomitant]
  10. FLUOXETINE HCL [Concomitant]
  11. FELODIPINE [Concomitant]
  12. FAMOTIDINE [Concomitant]

REACTIONS (2)
  - NAUSEA [None]
  - VOMITING [None]
